FAERS Safety Report 21267491 (Version 6)
Quarter: 2023Q2

REPORT INFORMATION
  Report Type: Spontaneous
  Country: US (occurrence: US)
  Receive Date: 20220829
  Receipt Date: 20230602
  Transmission Date: 20230722
  Serious: Yes (Other)
  Sender: FDA-Public Use
  Company Number: US-Blueprint Medicines Corporation-371

PATIENT
  Age: 61 Year
  Sex: Male

DRUGS (5)
  1. AYVAKIT [Suspect]
     Active Substance: AVAPRITINIB
     Indication: Haematopoietic neoplasm
     Route: 065
     Dates: start: 20210707
  2. AYVAKIT [Suspect]
     Active Substance: AVAPRITINIB
     Route: 065
     Dates: start: 20210707
  3. AYVAKIT [Suspect]
     Active Substance: AVAPRITINIB
     Route: 065
     Dates: start: 20210707
  4. AYVAKIT [Suspect]
     Active Substance: AVAPRITINIB
     Route: 065
     Dates: start: 20210707
  5. AYVAKIT [Suspect]
     Active Substance: AVAPRITINIB

REACTIONS (12)
  - Joint injury [Unknown]
  - Platelet count abnormal [Unknown]
  - Depression [Unknown]
  - Pyrexia [Unknown]
  - Influenza like illness [Unknown]
  - Lacrimation increased [Unknown]
  - Fatigue [Unknown]
  - Meniscus injury [Unknown]
  - Joint effusion [Unknown]
  - Arthritis [Unknown]
  - Pollakiuria [Unknown]
  - Arthralgia [Recovering/Resolving]

NARRATIVE: CASE EVENT DATE: 20220819
